FAERS Safety Report 7635986-5 (Version None)
Quarter: 2011Q3

REPORT INFORMATION
  Report Type: 
  Country: None (occurrence: None)
  Receive Date: 20110726
  Receipt Date: 20110713
  Transmission Date: 20111222
  Serious: No
  Sender: FDA-Public Use
  Company Number: JP-ELI_LILLY_AND_COMPANY-JP201107005099

PATIENT
  Sex: Female

DRUGS (2)
  1. TRIQUILAR [Concomitant]
     Indication: MENSTRUATION IRREGULAR
     Dosage: UNK
  2. ZYPREXA [Suspect]
     Dosage: 2.5 MG, QD
     Route: 048
     Dates: start: 20110601

REACTIONS (1)
  - POLYMENORRHOEA [None]
